FAERS Safety Report 26076710 (Version 2)
Quarter: 2025Q4

REPORT INFORMATION
  Report Type: Spontaneous
  Country: JP (occurrence: JP)
  Receive Date: 20251121
  Receipt Date: 20251223
  Transmission Date: 20260118
  Serious: Yes (Other)
  Sender: TAKEDA
  Company Number: JP-TAKEDA-2025TUS103675

PATIENT
  Age: 74 Year
  Sex: Male
  Weight: 55.5 kg

DRUGS (14)
  1. FOSRENOL [Suspect]
     Active Substance: LANTHANUM CARBONATE
     Indication: Hyperphosphataemia
     Dosage: UNK UNK, TID
     Dates: end: 20231207
  2. BIXALOMER [Suspect]
     Active Substance: BIXALOMER
     Indication: Hyperphosphataemia
     Dosage: UNK UNK, TID
     Dates: end: 20231207
  3. Lactulose takata [Concomitant]
     Dosage: UNK
  4. LOXOPROFEN SODIUM [Concomitant]
     Active Substance: LOXOPROFEN SODIUM
     Dosage: UNK
  5. LATANOPROST [Concomitant]
     Active Substance: LATANOPROST
     Dosage: UNK
  6. Ogikenchuto [Concomitant]
     Dosage: UNK
  7. ELOBIXIBAT [Concomitant]
     Active Substance: ELOBIXIBAT
     Dosage: UNK
  8. SENNOSIDES [Concomitant]
     Active Substance: SENNOSIDES
     Dosage: UNK
  9. Alosenn [Concomitant]
     Dosage: UNK
  10. AMLODIPINE [Concomitant]
     Active Substance: AMLODIPINE BESYLATE
     Dosage: UNK
  11. TELMISARTAN [Concomitant]
     Active Substance: TELMISARTAN
     Dosage: UNK
  12. RABEPRAZOLE SODIUM [Concomitant]
     Active Substance: RABEPRAZOLE SODIUM
     Dosage: UNK
  13. Etizolam towa [Concomitant]
     Dosage: UNK
  14. TRUSOPT [Concomitant]
     Active Substance: DORZOLAMIDE HYDROCHLORIDE
     Dosage: UNK

REACTIONS (6)
  - Faecaloma [Recovering/Resolving]
  - Constipation [Recovering/Resolving]
  - Activities of daily living decreased [Not Recovered/Not Resolved]
  - Gastrointestinal hypomotility [Recovering/Resolving]
  - Blood phosphorus decreased [Recovering/Resolving]
  - Product residue present [Recovering/Resolving]

NARRATIVE: CASE EVENT DATE: 20231207
